FAERS Safety Report 6882638-5 (Version None)
Quarter: 2010Q3

REPORT INFORMATION
  Report Type: 
  Country: None (occurrence: None)
  Receive Date: 20100729
  Receipt Date: 20100720
  Transmission Date: 20110219
  Serious: Yes (Death, Disabling)
  Sender: FDA-Public Use
  Company Number: US-ROCHE-703845

PATIENT
  Sex: Male
  Weight: 92.5 kg

DRUGS (14)
  1. XELODA [Suspect]
     Route: 048
  2. XELODA [Suspect]
     Dosage: ADDITIONAL INDICATION: COLON CARCINOID CARCINOMA
     Route: 048
     Dates: start: 20100101, end: 20100205
  3. AMBIEN [Concomitant]
     Indication: INSOMNIA
     Dosage: FREQUENCY: AS NECESSARY AT NIGHT
     Route: 048
  4. SANDOSTATIN LAR [Concomitant]
     Indication: CARCINOID TUMOUR
     Route: 030
  5. OXYCONTIN [Concomitant]
     Indication: PAIN
     Route: 048
  6. OXYCODONE HCL [Concomitant]
     Indication: PAIN
     Route: 048
  7. ATENOLOL [Concomitant]
  8. NORVASC [Concomitant]
  9. LASIX [Concomitant]
     Route: 048
  10. POTASSIUM [Concomitant]
     Route: 048
  11. IMODIUM [Concomitant]
     Indication: DIARRHOEA
     Dosage: FREQUENCY: AS NECESSARY
  12. COMPAZINE [Concomitant]
     Indication: NAUSEA
     Dosage: FREQUENCY: AS NECESSARY
  13. ATIVAN [Concomitant]
     Indication: ANXIETY
     Dosage: OTHER INDICATION: RESTLESSNESS
     Route: 048
  14. TRAMADOL HYDROCHLORIDE [Concomitant]
     Indication: PAIN
     Dosage: FREQUENCY: AS NECESSARY
     Route: 048

REACTIONS (7)
  - CONFUSIONAL STATE [None]
  - DEATH [None]
  - DECREASED APPETITE [None]
  - FALL [None]
  - FATIGUE [None]
  - SOMNOLENCE [None]
  - URINARY INCONTINENCE [None]
